FAERS Safety Report 5820320-3 (Version None)
Quarter: 2008Q3

REPORT INFORMATION
  Report Type: 
  Country: None (occurrence: None)
  Receive Date: 20080724
  Receipt Date: 20070606
  Transmission Date: 20090109
  Serious: No
  Sender: FDA-Public Use
  Company Number: A0654414A

PATIENT
  Age: 68 Year
  Sex: Female

DRUGS (7)
  1. AVANDIA [Suspect]
     Dosage: 4MG TWICE PER DAY
     Route: 048
     Dates: start: 20000101, end: 20070523
  2. METFORMIN [Concomitant]
  3. FOSAMAX [Concomitant]
  4. LISINOPRIL [Concomitant]
  5. SIMVASTATIN [Concomitant]
  6. LORAZEPAM [Concomitant]
  7. LEXAPRO [Concomitant]

REACTIONS (3)
  - PALPITATIONS [None]
  - URINARY TRACT INFECTION [None]
  - WEIGHT INCREASED [None]
